FAERS Safety Report 9650822 (Version 1)
Quarter: 2013Q4

REPORT INFORMATION
  Report Type: Spontaneous
  Country: FR (occurrence: FR)
  Receive Date: 20131029
  Receipt Date: 20131029
  Transmission Date: 20140711
  Serious: Yes (Hospitalization)
  Sender: FDA-Public Use
  Company Number: FR-JNJFOC-20131012567

PATIENT
  Age: 76 Year
  Sex: Female

DRUGS (6)
  1. DOXORUBICIN HYDROCHLORIDE (CAELYX) [Suspect]
     Indication: BREAST CANCER
     Route: 042
     Dates: start: 20130725, end: 20130725
  2. ONDANSETRON [Concomitant]
     Indication: PREMEDICATION
     Route: 042
     Dates: start: 20130725, end: 20130725
  3. METHYLPREDNISOLONE [Concomitant]
     Indication: PREMEDICATION
     Route: 042
     Dates: start: 20130725, end: 20130725
  4. INEXIUM [Concomitant]
     Route: 048
  5. SIFROL [Concomitant]
     Indication: RESTLESS LEGS SYNDROME
     Route: 048
  6. ATARAX [Concomitant]
     Route: 048

REACTIONS (3)
  - Dyspnoea [Recovered/Resolved]
  - Malaise [Recovered/Resolved]
  - Chest discomfort [Recovered/Resolved]
